FAERS Safety Report 9809139 (Version 1)
Quarter: 2014Q1

REPORT INFORMATION
  Report Type: Spontaneous
  Country: US (occurrence: US)
  Receive Date: 20140110
  Receipt Date: 20140110
  Transmission Date: 20141002
  Serious: No
  Sender: FDA-Public Use
  Company Number: US-MALLINCKRODT-T201301398

PATIENT
  Age: 51 Year
  Sex: Female

DRUGS (18)
  1. OPTIRAY [Suspect]
     Indication: COMPUTERISED TOMOGRAM
     Dosage: 123 ML, SINGLE
     Route: 042
     Dates: start: 20130226, end: 20130226
  2. ASPIRIN [Concomitant]
     Dosage: 81 MG, TABLET
     Route: 048
  3. CALCIUM [Concomitant]
     Dosage: UNK, TABLET
  4. CHOLESTYRAMINE [Concomitant]
     Dosage: 1 PACKET 3 TIMES DAILY
     Route: 048
     Dates: start: 20120306
  5. FOLIC ACID [Concomitant]
     Dosage: 1 MG TABLET
     Route: 048
  6. HYDROXYZINE                        /00058402/ [Concomitant]
     Dosage: 25 MG, TABLET
     Route: 048
  7. NOVOLOG [Concomitant]
     Dosage: UNK
  8. SENSIPAR [Concomitant]
     Dosage: 30 MG, TABLET
     Route: 048
  9. VITAMIN B COMPLEX [Concomitant]
     Dosage: TABLET
     Route: 048
  10. RENO                               /00028904/ [Concomitant]
     Dosage: TABLET
     Route: 048
  11. LABETALOL [Concomitant]
     Dosage: 200 MG, TABLET
     Route: 048
  12. OMEPRAZOLE [Concomitant]
     Dosage: 20 MG, CAPSULE
  13. RISPERIDONE [Concomitant]
     Dosage: 0.5 MG, TABLET
     Route: 048
  14. ZOLPIDEM [Concomitant]
     Dosage: 10 MG, TABLET
     Route: 048
  15. HYDROCODONE W/ACETAMINOPHEN [Concomitant]
     Dosage: 5/325 TABLET
  16. CARVEDILOL [Concomitant]
     Dosage: 12.5 MG, TABLET
     Route: 048
  17. GABAPENTIN [Concomitant]
     Dosage: 300 MG, CAPSULES
  18. HYDROXYZINE PAMOATE [Concomitant]
     Dosage: UNK

REACTIONS (1)
  - Hypersensitivity [Recovered/Resolved]
